FAERS Safety Report 8794304 (Version 1)
Quarter: 2012Q4

REPORT INFORMATION
  Report Type: 
  Country: TW (occurrence: TW)
  Receive Date: 20120917
  Receipt Date: 20120917
  Transmission Date: 20130627
  Serious: Yes (Other)
  Sender: FDA-Public Use
  Company Number: PHHY2012TW079793

PATIENT
  Age: 58 Year
  Sex: Female

DRUGS (2)
  1. ZOLEDRONIC ACID [Suspect]
     Indication: OSTEOPOROSIS
     Dosage: 5 mg/100 mL
     Route: 042
     Dates: start: 200902
  2. ZOLEDRONIC ACID [Suspect]
     Dosage: 5 mg/100 mL
     Route: 042
     Dates: start: 201002

REACTIONS (8)
  - Osteonecrosis of jaw [Unknown]
  - Wound complication [Unknown]
  - Wound haemorrhage [Unknown]
  - Bone fistula [Unknown]
  - Purulent discharge [Unknown]
  - Oedema mucosal [Unknown]
  - Oral mucosal erythema [Unknown]
  - Exposed bone in jaw [Unknown]
